FAERS Safety Report 6810713-X (Version None)
Quarter: 2010Q2

REPORT INFORMATION
  Report Type: 
  Country: None (occurrence: None)
  Receive Date: 20100630
  Receipt Date: 20070719
  Transmission Date: 20101027
  Serious: No
  Sender: FDA-Public Use
  Company Number: US-PFIZER INC-2007060146

PATIENT
  Sex: Female
  Weight: 86.363 kg

DRUGS (3)
  1. ESTRING [Suspect]
     Indication: HORMONE REPLACEMENT THERAPY
     Route: 067
     Dates: start: 20070711
  2. ESTRING [Suspect]
     Indication: ATROPHY
  3. ESTROGENS [Concomitant]
     Indication: ATROPHY
     Route: 061
     Dates: start: 20070711

REACTIONS (3)
  - DIARRHOEA [None]
  - VULVOVAGINAL DISCOMFORT [None]
  - VULVOVAGINAL PAIN [None]
